FAERS Safety Report 8547990 (Version 4)
Quarter: 2013Q4

REPORT INFORMATION
  Report Type: Report from Study
  Country: US (occurrence: US)
  Receive Date: 20120504
  Receipt Date: 20131206
  Transmission Date: 20140711
  Serious: Yes (Life-Threatening, Hospitalization, Other)
  Sender: FDA-Public Use
  Company Number: US-ROCHE-1053576

PATIENT
  Age: 37 Year
  Sex: Female

DRUGS (30)
  1. OMALIZUMAB [Suspect]
     Indication: ASTHMA
     Dosage: MOST RECENT DOSE:18/JAN/2013
     Route: 058
     Dates: start: 20100128
  2. OMALIZUMAB [Suspect]
     Dosage: 8 WEEKS PRIOR TO CONCEPTION
     Route: 058
     Dates: start: 20110813
  3. OMALIZUMAB [Suspect]
     Dosage: FIRST TRIMESTER
     Route: 058
     Dates: start: 20110910
  4. OMALIZUMAB [Suspect]
     Dosage: FIRST TRIMESTER
     Route: 058
     Dates: start: 20111117
  5. OMALIZUMAB [Suspect]
     Dosage: SECOND TRIMESTER
     Route: 058
     Dates: start: 20111222
  6. OMALIZUMAB [Suspect]
     Dosage: SECOND TRIMESTER
     Route: 058
     Dates: start: 20120130
  7. OMALIZUMAB [Suspect]
     Dosage: SECOND TRIMESTER
     Route: 058
     Dates: start: 20120303
  8. OMALIZUMAB [Suspect]
     Route: 058
     Dates: start: 20120605
  9. OMALIZUMAB [Suspect]
     Route: 058
     Dates: start: 20120824
  10. OMALIZUMAB [Suspect]
     Route: 058
     Dates: start: 20121018
  11. OMALIZUMAB [Suspect]
     Route: 058
     Dates: start: 20130118
  12. OMALIZUMAB [Suspect]
     Route: 058
     Dates: start: 20130318
  13. OMALIZUMAB [Suspect]
     Route: 065
     Dates: start: 20130619
  14. OMALIZUMAB [Suspect]
     Route: 065
     Dates: start: 20130805
  15. OMALIZUMAB [Suspect]
     Route: 065
     Dates: start: 20130909
  16. OMALIZUMAB [Suspect]
     Route: 065
     Dates: start: 20131108
  17. SYMBICORT [Concomitant]
     Indication: ASTHMA
  18. ZYRTEC [Concomitant]
     Indication: HYPERSENSITIVITY
     Route: 048
  19. SINGULAIR [Concomitant]
     Indication: ASTHMA
  20. XOPENEX HFA [Concomitant]
     Indication: ASTHMA
     Dosage: DRUG NAME: XOPENEX NEBULIZER, INHALER
     Route: 065
  21. TYLENOL [Concomitant]
     Indication: HEADACHE
     Route: 048
  22. VICODIN [Concomitant]
     Indication: MUSCLE STRAIN
  23. SOLU-MEDROL [Concomitant]
     Indication: ASTHMA
     Route: 042
     Dates: start: 20120424, end: 20120424
  24. SOLU-MEDROL [Concomitant]
     Route: 042
     Dates: start: 20130426, end: 20130426
  25. ANCEF (CANADA) [Concomitant]
     Indication: STREPTOCOCCAL INFECTION
     Dosage: INDICATION: POSITIVE GROUP B STREP
     Route: 042
     Dates: start: 20120424, end: 20120424
  26. HYDROCHLOROTHIAZIDE [Concomitant]
     Indication: BLOOD PRESSURE INCREASED
     Route: 048
     Dates: start: 20120427
  27. IMMUNOTHERAPY UNKNOWN ALLERGEN INJECTION [Concomitant]
     Indication: HYPERSENSITIVITY
  28. DOXYCYCLINE [Concomitant]
     Indication: SINUSITIS
  29. VERAMYST [Concomitant]
     Indication: HYPERSENSITIVITY
     Route: 045
  30. LEVAQUIN [Concomitant]
     Indication: UPPER RESPIRATORY TRACT INFECTION
     Route: 048
     Dates: start: 20130426

REACTIONS (6)
  - Immunodeficiency common variable [Unknown]
  - B-lymphocyte abnormalities [Unknown]
  - Drug hypersensitivity [Recovered/Resolved]
  - Gestational hypertension [Recovered/Resolved]
  - Exposure during pregnancy [Unknown]
  - Malaise [Unknown]
